FAERS Safety Report 9081191 (Version 1)
Quarter: 2013Q1

REPORT INFORMATION
  Report Type: Spontaneous
  Country: US (occurrence: US)
  Receive Date: 20130218
  Receipt Date: 20130218
  Transmission Date: 20140127
  Serious: No
  Sender: FDA-Public Use
  Company Number: US-PFIZER INC-2013058218

PATIENT
  Age: 69 Year
  Sex: Female
  Weight: 90 kg

DRUGS (10)
  1. CADUET [Suspect]
     Indication: HYPERTENSION
     Dosage: 10/20 MG, 1X/DAY
     Route: 048
  2. CADUET [Suspect]
     Indication: BLOOD CHOLESTEROL INCREASED
  3. POTASSIUM [Concomitant]
     Dosage: UNK, 3X/DAY
  4. XANAX [Concomitant]
     Indication: ANXIETY
     Dosage: 1 MG, 3X/DAY
  5. HYDROCHLOROTHIAZIDE [Concomitant]
     Dosage: UNK, 1X/DAY
  6. VITAMIN A [Concomitant]
     Dosage: UNK
  7. VITAMIN C [Concomitant]
     Dosage: UNK
  8. VITAMIN D [Concomitant]
     Dosage: UNK
  9. VITAMIN E [Concomitant]
     Dosage: UNK
  10. VITAMIN B12 [Concomitant]
     Dosage: UNK

REACTIONS (6)
  - Arthritis [Unknown]
  - Fatigue [Unknown]
  - Back pain [Unknown]
  - Neck pain [Unknown]
  - Musculoskeletal pain [Unknown]
  - Malaise [Unknown]
